FAERS Safety Report 8645159 (Version 4)
Quarter: 2012Q4

REPORT INFORMATION
  Report Type: 
  Country: JP (occurrence: JP)
  Receive Date: 20120702
  Receipt Date: 20121025
  Transmission Date: 20130627
  Serious: Yes (Death)
  Sender: FDA-Public Use
  Company Number: PHHY2012JP056058

PATIENT
  Age: 71 Year
  Sex: Male

DRUGS (3)
  1. TASIGNA [Suspect]
     Indication: CHRONIC MYELOID LEUKAEMIA
     Route: 048
     Dates: start: 20120510
  2. ANTIHYPERTENSIVES [Concomitant]
  3. BETA BLOCKING AGENTS [Concomitant]
     Indication: CARDIAC FAILURE

REACTIONS (3)
  - Myocardial infarction [Fatal]
  - Cardiac arrest [Fatal]
  - Loss of consciousness [Unknown]
